FAERS Safety Report 10692006 (Version 1)
Quarter: 2015Q1

REPORT INFORMATION
  Report Type: Spontaneous
  Country: GB (occurrence: GB)
  Receive Date: 20150106
  Receipt Date: 20150106
  Transmission Date: 20150720
  Serious: Yes (Hospitalization, Disabling, Other)
  Sender: FDA-Public Use
  Company Number: GB-CIPLA LTD.-2014GB02990

PATIENT

DRUGS (2)
  1. TOPIRAMATE. [Suspect]
     Active Substance: TOPIRAMATE
     Indication: MIGRAINE
     Dosage: 25 MG, QD (STARTED AT 25/DAY INCREASED TO 75 G PER DAY- 25 G MORNING AND 50 M AT NIGHT)
     Route: 048
     Dates: start: 20141001
  2. TOPIRAMATE. [Suspect]
     Active Substance: TOPIRAMATE
     Dosage: 75 MG  (25 MG IN THE MORNING AND 50 MG AT NIGHT)
     Route: 048
     Dates: end: 20141105

REACTIONS (3)
  - Anal fissure [Not Recovered/Not Resolved]
  - Constipation [Unknown]
  - Confusional state [Recovered/Resolved]

NARRATIVE: CASE EVENT DATE: 20141007
